FAERS Safety Report 7608235-1 (Version None)
Quarter: 2011Q3

REPORT INFORMATION
  Report Type: 
  Country: None (occurrence: None)
  Receive Date: 20110714
  Receipt Date: 20110621
  Transmission Date: 20111222
  Serious: No
  Sender: FDA-Public Use
  Company Number: US-B.I. PHARMACEUTICALS,INC./RIDGEFIELD-2011-BP-12258BP

PATIENT
  Sex: Female

DRUGS (7)
  1. LISINOPRIL [Concomitant]
     Indication: HYPERTENSION
     Dates: start: 19850101
  2. ASPIRIN [Concomitant]
     Indication: CARDIAC MURMUR
     Dates: start: 20090101
  3. NEXIUM [Concomitant]
     Indication: DYSPEPSIA
     Dates: start: 20070101
  4. POTASSIUM [Concomitant]
     Indication: BLOOD POTASSIUM DECREASED
     Dosage: 20 MG
     Route: 048
     Dates: start: 19850101
  5. SPIRIVA [Suspect]
     Indication: CHRONIC OBSTRUCTIVE PULMONARY DISEASE
     Dosage: 18 MCG
     Route: 055
     Dates: start: 20100401
  6. SIMVASTATIN [Concomitant]
     Indication: BLOOD CHOLESTEROL INCREASED
     Dosage: 40 MG
     Route: 048
     Dates: start: 20050101
  7. PREMARIN [Concomitant]
     Indication: HORMONE LEVEL ABNORMAL
     Dosage: 625 MG
     Route: 048
     Dates: start: 20090101

REACTIONS (2)
  - COUGH [None]
  - ASTHENIA [None]
